FAERS Safety Report 4613267-1 (Version None)
Quarter: 2005Q1

REPORT INFORMATION
  Report Type: 
  Country: None (occurrence: None)
  Receive Date: 20050315
  Receipt Date: 20050307
  Transmission Date: 20050727
  Serious: Yes (Death, Hospitalization)
  Sender: FDA-Public Use
  Company Number: F01200403260

PATIENT
  Age: 48 Year
  Sex: Male

DRUGS (12)
  1. (OXALIPLATIN) - SOLUTION - 85 MG/M2 /SOLUTION - 85 MG/M2 [Suspect]
     Indication: COLORECTAL CANCER METASTATIC
     Dosage: 85 MG/M2 Q3W / NI
     Route: 042
     Dates: start: 20040831, end: 20040831
  2. (OXALIPLATIN) - SOLUTION - 85 MG/M2 /SOLUTION - 85 MG/M2 [Suspect]
     Indication: COLORECTAL CANCER METASTATIC
     Dosage: 85 MG/M2 Q3W / NI
     Route: 042
     Dates: start: 20041012, end: 20041012
  3. FLUOROURACIL [Suspect]
     Dosage: 1000 MG/M2 Q3W / NI
     Route: 042
     Dates: start: 20040831, end: 20040901
  4. FLUOROURACIL [Suspect]
     Dosage: 1000 MG/M2 Q3W / NI
     Route: 042
     Dates: start: 20041012, end: 20041013
  5. (LEUCOVORIN) - SOLUTION - 200 MG/M2 / SOLUTION - 200 MG/M2 [Suspect]
     Dosage: 200 MG/M2 Q3W / NI
     Route: 042
     Dates: start: 20040831, end: 20040901
  6. (LEUCOVORIN) - SOLUTION - 200 MG/M2 / SOLUTION - 200 MG/M2 [Suspect]
     Dosage: 200 MG/M2 Q3W / NI
     Route: 042
     Dates: start: 20041012, end: 20041013
  7. (BEVACIZUMAB) - SOLUTION - 5 MG/KG / SOLUTION  - 1 UNIT [Suspect]
     Dosage: 5 MG/KG Q3W / NI
     Route: 042
     Dates: start: 20040831, end: 20040831
  8. (BEVACIZUMAB) - SOLUTION - 5 MG/KG / SOLUTION  - 1 UNIT [Suspect]
     Dosage: 5 MG/KG Q3W / NI
     Route: 042
     Dates: start: 20041012, end: 20041012
  9. BISOPROLOL FUMARATE [Concomitant]
  10. BEXTRA [Concomitant]
  11. ACC (ACETYLACYSTEINE) [Concomitant]
  12. NOVALGIN (METAMIZOLE SODIUM) [Concomitant]

REACTIONS (8)
  - ABSCESS [None]
  - ANAEMIA [None]
  - ASTHENIA [None]
  - CARDIOVASCULAR DISORDER [None]
  - COLORECTAL CANCER METASTATIC [None]
  - INTESTINAL PERFORATION [None]
  - METASTASES TO PERITONEUM [None]
  - PERITONITIS [None]
